FAERS Safety Report 6305440-1 (Version None)
Quarter: 2009Q3

REPORT INFORMATION
  Report Type: 
  Country: None (occurrence: None)
  Receive Date: 20090811
  Receipt Date: 20090730
  Transmission Date: 20100115
  Serious: Yes (Hospitalization, Other)
  Sender: FDA-Public Use
  Company Number: US-WYE-H10401909

PATIENT
  Age: 40 Year
  Sex: Female

DRUGS (7)
  1. EFFEXOR XR [Suspect]
     Indication: DEPRESSION
     Dosage: UNKNOWN
     Route: 048
     Dates: start: 20040101, end: 20090101
  2. EFFEXOR XR [Suspect]
     Route: 048
     Dates: start: 20090101, end: 20090101
  3. EFFEXOR XR [Suspect]
     Route: 048
     Dates: start: 20090101, end: 20090101
  4. EFFEXOR XR [Suspect]
     Dosage: ATTEMPTING TO DISCONTINUE, UNKNOWN DOSAGES
     Route: 048
     Dates: start: 20090101, end: 20090101
  5. EFFEXOR XR [Suspect]
     Route: 048
     Dates: start: 20090701
  6. XANAX [Suspect]
     Dosage: OVERDOSE AMOUNT 100 TABLETS
     Route: 048
     Dates: start: 20090723, end: 20090723
  7. EFFEXOR [Suspect]
     Indication: DEPRESSION
     Dosage: SWITCHED TO TABLETS TO DISCONTINUE, UNKNOWN DOSE
     Route: 048
     Dates: start: 20090701, end: 20090701

REACTIONS (4)
  - DEPRESSION [None]
  - DRUG WITHDRAWAL SYNDROME [None]
  - INTENTIONAL OVERDOSE [None]
  - SUICIDE ATTEMPT [None]
